FAERS Safety Report 12232187 (Version 3)
Quarter: 2020Q2

REPORT INFORMATION
  Report Type: Spontaneous
  Country: US (occurrence: US)
  Receive Date: 20160401
  Receipt Date: 20200604
  Transmission Date: 20200713
  Serious: No
  Sender: FDA-Public Use
  Company Number: US-PFIZER INC-2016174402

PATIENT
  Age: 65 Year
  Sex: Female
  Weight: 68.04 kg

DRUGS (3)
  1. PREMPRO [Suspect]
     Active Substance: ESTROGENS, CONJUGATED\MEDROXYPROGESTERONE ACETATE
     Indication: MENOPAUSE
     Dosage: 0.625 MG, ONCE DAILY
     Route: 048
  2. PREMPRO [Suspect]
     Active Substance: ESTROGENS, CONJUGATED\MEDROXYPROGESTERONE ACETATE
     Indication: MOOD SWINGS
     Dosage: 1 DF, ALTERNATE DAY (0.625 MG/2.5 MG)
     Route: 048
  3. PREMPRO [Suspect]
     Active Substance: ESTROGENS, CONJUGATED\MEDROXYPROGESTERONE ACETATE
     Indication: HOT FLUSH
     Dosage: 0.625 MG, ALTERNATE DAY
     Route: 048
     Dates: start: 201907

REACTIONS (4)
  - Off label use [Unknown]
  - Insomnia [Unknown]
  - Intentional product misuse [Unknown]
  - Irritability [Unknown]

NARRATIVE: CASE EVENT DATE: 201907
